FAERS Safety Report 4996972-7 (Version None)
Quarter: 2006Q2

REPORT INFORMATION
  Report Type: 
  Country: None (occurrence: None)
  Receive Date: 20060508
  Receipt Date: 20060508
  Transmission Date: 20061013
  Serious: Yes (Hospitalization, Disabling)
  Sender: FDA-Public Use
  Company Number: None

PATIENT
  Sex: Female
  Weight: 49.4421 kg

DRUGS (1)
  1. ABILIFY [Suspect]
     Indication: IMPULSIVE BEHAVIOUR
     Dosage: 1 TABLET @BEDTIME PO
     Route: 048
     Dates: start: 20060424, end: 20060505

REACTIONS (5)
  - DROOLING [None]
  - DYSPHAGIA [None]
  - FEELING ABNORMAL [None]
  - NECK PAIN [None]
  - TARDIVE DYSKINESIA [None]
